FAERS Safety Report 24139247 (Version 1)
Quarter: 2024Q3

REPORT INFORMATION
  Report Type: Spontaneous
  Country: US (occurrence: US)
  Receive Date: 20240726
  Receipt Date: 20240726
  Transmission Date: 20241016
  Serious: Yes (Hospitalization)
  Sender: STRIDES
  Company Number: US-STRIDES ARCOLAB LIMITED-2024SP009054

PATIENT

DRUGS (12)
  1. VANCOMYCIN [Suspect]
     Active Substance: VANCOMYCIN
     Indication: Congenital tuberculosis
     Dosage: 15 MILLIGRAM/KILOGRAM/DOSE, EVERY 8 HRS
     Route: 065
  2. VANCOMYCIN [Suspect]
     Active Substance: VANCOMYCIN
     Dosage: UNK, RESTARTED
     Route: 065
  3. MEROPENEM [Suspect]
     Active Substance: MEROPENEM
     Indication: Tuberculosis gastrointestinal
     Dosage: UNK
     Route: 065
  4. RIFAMPIN [Suspect]
     Active Substance: RIFAMPIN
     Indication: Congenital tuberculosis
     Dosage: 15 MILLIGRAM/KILOGRAM, QD
     Route: 048
  5. RIFAMPIN [Suspect]
     Active Substance: RIFAMPIN
     Dosage: 20 MILLIGRAM/KILOGRAM, QD
     Route: 048
  6. ISONIAZID [Suspect]
     Active Substance: ISONIAZID
     Indication: Congenital tuberculosis
     Dosage: 10 MILLIGRAM/KILOGRAM, QD
     Route: 048
  7. ISONIAZID [Suspect]
     Active Substance: ISONIAZID
     Dosage: 15 MILLIGRAM/KILOGRAM, QD
     Route: 048
  8. PYRIDOXINE [Suspect]
     Active Substance: PYRIDOXINE
     Indication: Congenital tuberculosis
     Dosage: UNK
     Route: 065
  9. PYRAZINAMIDE [Suspect]
     Active Substance: PYRAZINAMIDE
     Indication: Congenital tuberculosis
     Dosage: 35 MILLIGRAM/KILOGRAM, QD
     Route: 065
  10. ETHAMBUTOL [Suspect]
     Active Substance: ETHAMBUTOL HYDROCHLORIDE
     Indication: Congenital tuberculosis
     Dosage: 20 MILLIGRAM/KILOGRAM
     Route: 065
  11. AMIKACIN [Suspect]
     Active Substance: AMIKACIN
     Indication: Congenital tuberculosis
     Dosage: UNK
     Route: 065
  12. PIPERACILLIN SODIUM\TAZOBACTAM SODIUM [Concomitant]
     Active Substance: PIPERACILLIN SODIUM\TAZOBACTAM SODIUM
     Indication: Sepsis neonatal
     Dosage: 80 MILLIGRAM/KILOGRAM, EVERY 6 HRS
     Route: 065

REACTIONS (3)
  - Paradoxical drug reaction [Recovered/Resolved]
  - Drug ineffective [Unknown]
  - Off label use [Unknown]
